FAERS Safety Report 17249953 (Version 2)
Quarter: 2020Q1

REPORT INFORMATION
  Report Type: Spontaneous
  Country: US (occurrence: US)
  Receive Date: 20200109
  Receipt Date: 20200304
  Transmission Date: 20200409
  Serious: No
  Sender: FDA-Public Use
  Company Number: US-BAUSCH-BL-2020-000322

PATIENT
  Age: 61 Year
  Sex: Female
  Weight: 54.48 kg

DRUGS (1)
  1. LUMIFY [Suspect]
     Active Substance: BRIMONIDINE TARTRATE
     Indication: OCULAR HYPERAEMIA
     Dosage: 3-4 TIMES PER DAY WHEN NEEDED
     Route: 047
     Dates: start: 20191231, end: 20200102

REACTIONS (2)
  - Drug ineffective [Unknown]
  - Physical product label issue [Unknown]
